FAERS Safety Report 4909940-8 (Version None)
Quarter: 2006Q1

REPORT INFORMATION
  Report Type: 
  Country: None (occurrence: None)
  Receive Date: 20060208
  Receipt Date: 20060127
  Transmission Date: 20060701
  Serious: Yes (Death, Hospitalization)
  Sender: FDA-Public Use
  Company Number: 2006008420

PATIENT
  Age: 81 Year
  Sex: Male
  Weight: 78 kg

DRUGS (4)
  1. LYRICA [Suspect]
     Indication: POLYNEUROPATHY
     Dosage: 75 MG (75 MG, 1 IN 1 D), ORAL
     Route: 048
     Dates: start: 20050727, end: 20051104
  2. MARCUMAR [Concomitant]
  3. ACETAMINOPHEN [Concomitant]
  4. OXIS (FORMOTEROL) [Concomitant]

REACTIONS (3)
  - BLOOD ELECTROLYTES ABNORMAL [None]
  - DIALYSIS [None]
  - RENAL FAILURE ACUTE [None]
